FAERS Safety Report 4809770-1 (Version None)
Quarter: 2005Q4

REPORT INFORMATION
  Report Type: 
  Country: None (occurrence: None)
  Receive Date: 20051024
  Receipt Date: 20051010
  Transmission Date: 20060501
  Serious: Yes (Other)
  Sender: FDA-Public Use
  Company Number: 2005140806

PATIENT
  Sex: Male
  Weight: 72.1219 kg

DRUGS (4)
  1. VIAGRA [Suspect]
     Indication: ERECTILE DYSFUNCTION
     Dosage: 50 MG (50 MG)/MAYBE 3 YEARS AGO
     Dates: end: 20040101
  2. LOPRESSOR [Concomitant]
  3. LASIX [Concomitant]
  4. LORTAB [Concomitant]

REACTIONS (5)
  - ASTHENIA [None]
  - COLON CANCER [None]
  - DYSURIA [None]
  - MALAISE [None]
  - THERMAL BURN [None]
